FAERS Safety Report 20083855 (Version 1)
Quarter: 2021Q4

REPORT INFORMATION
  Report Type: Other
  Country: SA (occurrence: None)
  Receive Date: 20211118
  Receipt Date: 20211118
  Transmission Date: 20220303
  Serious: Yes (Death, Other)
  Sender: FDA-Public Use
  Company Number: SA-ROCHE-2955055

PATIENT

DRUGS (5)
  1. MYCOPHENOLATE MOFETIL [Suspect]
     Active Substance: MYCOPHENOLATE MOFETIL
     Indication: Prophylaxis against graft versus host disease
     Route: 065
  2. CYCLOSPORINE [Suspect]
     Active Substance: CYCLOSPORINE
     Indication: Prophylaxis against graft versus host disease
     Route: 065
  3. CYCLOPHOSPHAMIDE [Suspect]
     Active Substance: CYCLOPHOSPHAMIDE
     Indication: Prophylaxis against graft versus host disease
     Dosage: ON DAY 3 AND 5
     Route: 065
  4. FLUDARABINE [Suspect]
     Active Substance: FLUDARABINE PHOSPHATE
     Indication: Prophylaxis against transplant rejection
     Dosage: FOR 5 DAYS GIVEN ON DAYS -6, -5, -4, -3, AND -2
     Route: 065
  5. THYMOCYTE IMMUNE GLOBULIN NOS [Suspect]
     Active Substance: THYMOCYTE IMMUNE GLOBULIN NOS
     Indication: Prophylaxis against transplant rejection
     Dosage: FOR 4 DAYS GIVEN ON DAYS -5, -4, -3, AND -2
     Route: 065

REACTIONS (7)
  - Infection [Fatal]
  - Mucosal inflammation [Unknown]
  - Cystitis haemorrhagic [Unknown]
  - BK virus infection [Unknown]
  - Cytomegalovirus infection [Unknown]
  - Epstein-Barr virus infection reactivation [Unknown]
  - Venoocclusive liver disease [Unknown]
